FAERS Safety Report 8995822 (Version 1)
Quarter: 2013Q1

REPORT INFORMATION
  Report Type: Spontaneous
  Country: FR (occurrence: FR)
  Receive Date: 20130103
  Receipt Date: 20130103
  Transmission Date: 20140127
  Serious: Yes (Hospitalization)
  Sender: FDA-Public Use
  Company Number: FR-GILEAD-2012-0061067

PATIENT
  Age: 64 Year
  Sex: Female

DRUGS (5)
  1. TRUVADA [Suspect]
     Indication: HIV INFECTION
     Dosage: 1 DF, QD
     Route: 048
     Dates: start: 20070315, end: 20120830
  2. KALETRA [Concomitant]
     Dosage: UNK
     Route: 048
     Dates: start: 20020715
  3. AMLOR [Concomitant]
     Route: 048
  4. LEXOMIL [Concomitant]
     Route: 048
  5. DOLIPRANE [Concomitant]

REACTIONS (4)
  - Dehydration [Unknown]
  - Anaemia [Recovered/Resolved]
  - Renal failure acute [Recovering/Resolving]
  - Overdose [Recovered/Resolved]
